FAERS Safety Report 6177881-7 (Version None)
Quarter: 2009Q2

REPORT INFORMATION
  Report Type: 
  Country: None (occurrence: None)
  Receive Date: 20090504
  Receipt Date: 20090115
  Transmission Date: 20091009
  Serious: No
  Sender: FDA-Public Use
  Company Number: US-ALEXION-A200900038

PATIENT
  Sex: Male

DRUGS (2)
  1. SOLIRIS [Suspect]
     Indication: PAROXYSMAL NOCTURNAL HAEMOGLOBINURIA
     Dosage: UNK
  2. VITAMIN B12                        /00056201/ [Concomitant]
     Dosage: UNK
     Route: 048

REACTIONS (2)
  - NASOPHARYNGITIS [None]
  - PRURITUS [None]
